FAERS Safety Report 16823643 (Version 2)
Quarter: 2019Q4

REPORT INFORMATION
  Report Type: Report from Study
  Country: US (occurrence: US)
  Receive Date: 20190918
  Receipt Date: 20191202
  Transmission Date: 20200122
  Serious: Yes (Other)
  Sender: FDA-Public Use
  Company Number: US-ALEXION PHARMACEUTICALS INC.-A201913440

PATIENT
  Sex: Female

DRUGS (2)
  1. SOLIRIS [Suspect]
     Active Substance: ECULIZUMAB
     Indication: PAROXYSMAL NOCTURNAL HAEMOGLOBINURIA
     Dosage: UNK
     Route: 042
     Dates: start: 20170602
  2. SOLIRIS [Suspect]
     Active Substance: ECULIZUMAB
     Dosage: UNK, Q2W
     Route: 042

REACTIONS (6)
  - Haemoglobin decreased [Unknown]
  - Malaise [Recovering/Resolving]
  - Nasopharyngitis [Recovering/Resolving]
  - Influenza [Recovering/Resolving]
  - Fatigue [Not Recovered/Not Resolved]
  - Infection [Recovering/Resolving]

NARRATIVE: CASE EVENT DATE: 2019
